FAERS Safety Report 12349766 (Version 1)
Quarter: 2016Q2

REPORT INFORMATION
  Report Type: Spontaneous
  Country: None (occurrence: None)
  Receive Date: 20160509
  Receipt Date: 20160509
  Transmission Date: 20160815
  Serious: Yes (Disabling, Other)
  Sender: FDA-Public Use
  Company Number: None

PATIENT
  Age: 34 Year
  Sex: Female
  Weight: 72.58 kg

DRUGS (7)
  1. ALLERGIE SHOT DUST MITES AND MOLD [Suspect]
     Active Substance: ALLERGENIC EXTRACT- MITE\ALLERGENIC EXTRACT- MOLD
  2. BENADRYL [Concomitant]
     Active Substance: DIPHENHYDRAMINE HYDROCHLORIDE
  3. ALLERGIE SHOT ANIMAL DANDER DOG [Suspect]
     Active Substance: CANIS LUPUS FAMILIARIS HAIR
  4. ALLERGIE SHOT ANIMAL DANDER CAT [Suspect]
     Active Substance: FELIS CATUS DANDER
     Dosage: GIVEN INTO/UNDER THE SKIN
     Route: 058
     Dates: start: 20100104, end: 20121116
  5. ALLERGIE SHOT POLLENS (RAGWEEDS, TREES) [Suspect]
     Active Substance: ALLERGENIC EXTRACT- POLLEN
  6. MUCINEX [Concomitant]
     Active Substance: GUAIFENESIN
  7. ALLERGIE SHOT ANIMAL DANDER HORSE [Suspect]
     Active Substance: EQUUS CABALLUS DANDER\EQUUS CABALLUS HAIR

REACTIONS (9)
  - Depression [None]
  - Urticaria [None]
  - Panic attack [None]
  - Fatigue [None]
  - Hypersensitivity [None]
  - Food allergy [None]
  - Quality of life decreased [None]
  - Anxiety [None]
  - Impaired work ability [None]

NARRATIVE: CASE EVENT DATE: 20120501
